FAERS Safety Report 23159442 (Version 1)
Quarter: 2023Q4

REPORT INFORMATION
  Report Type: Spontaneous
  Country: CA (occurrence: CA)
  Receive Date: 20231108
  Receipt Date: 20231108
  Transmission Date: 20240110
  Serious: Yes (Other)
  Sender: FDA-Public Use
  Company Number: CA-MYLANLABS-2023M1117905

PATIENT
  Age: 60 Year
  Sex: Male

DRUGS (4)
  1. CINACALCET HYDROCHLORIDE [Suspect]
     Active Substance: CINACALCET HYDROCHLORIDE
     Indication: Hypercalcaemia
     Dosage: UNK
     Route: 065
  2. CALCITONIN [Suspect]
     Active Substance: CALCITONIN
     Indication: Hypercalcaemia
     Dosage: UNK
     Route: 065
  3. DENOSUMAB [Suspect]
     Active Substance: DENOSUMAB
     Indication: Hypercalcaemia
     Dosage: UNK
     Route: 058
  4. PAMIDRONATE DISODIUM [Suspect]
     Active Substance: PAMIDRONATE DISODIUM
     Indication: Hypercalcaemia
     Dosage: UNK
     Route: 065

REACTIONS (1)
  - Drug ineffective [Unknown]
